FAERS Safety Report 9295748 (Version 1)
Quarter: 2013Q2

REPORT INFORMATION
  Report Type: Spontaneous
  Country: US (occurrence: CA)
  Receive Date: 20130517
  Receipt Date: 20130517
  Transmission Date: 20140414
  Serious: Yes (Other)
  Sender: FDA-Public Use
  Company Number: CA-PFIZER INC-2013146344

PATIENT
  Age: 8 Year
  Sex: Male

DRUGS (10)
  1. VANCOMYCIN [Suspect]
     Indication: SHUNT INFECTION
     Dosage: 400 MG EVERY 6 HOURS (60 MG/KG PER DAY)
     Route: 042
  2. VANCOMYCIN [Suspect]
     Indication: STAPHYLOCOCCAL INFECTION
  3. CLOXACILLIN [Concomitant]
     Indication: SHUNT INFECTION
     Dosage: UNK
  4. CLOXACILLIN [Concomitant]
     Indication: STAPHYLOCOCCAL INFECTION
  5. FENTANYL [Concomitant]
     Indication: GENERAL ANAESTHESIA
     Dosage: UNK
  6. PROPOFOL [Concomitant]
     Indication: GENERAL ANAESTHESIA
     Dosage: UNK
  7. ROCURONIUM [Concomitant]
     Indication: GENERAL ANAESTHESIA
     Dosage: UNK
  8. ISOFLURANE [Concomitant]
     Indication: GENERAL ANAESTHESIA
     Dosage: UNK
     Route: 055
  9. DIMENHYDRINATE [Concomitant]
     Dosage: 1 DF, UNK
  10. KETOROLAC [Concomitant]
     Dosage: 1 DF, UNK

REACTIONS (3)
  - Renal tubular necrosis [Recovered/Resolved]
  - Tubulointerstitial nephritis [Recovered/Resolved]
  - Toxicity to various agents [Recovered/Resolved]
